FAERS Safety Report 21131047 (Version 4)
Quarter: 2023Q1

REPORT INFORMATION
  Report Type: Report from Study
  Country: CN (occurrence: None)
  Receive Date: 20220726
  Receipt Date: 20230313
  Transmission Date: 20230417
  Serious: Yes (Hospitalization)
  Sender: FDA-Public Use
  Company Number: CN-ROCHE-3145066

PATIENT
  Age: 76 Year
  Sex: Male

DRUGS (14)
  1. RITUXIMAB [Suspect]
     Active Substance: RITUXIMAB
     Indication: Mantle cell lymphoma
     Dosage: SUBSEQUENT DOSE (560 MG) OF RITUXIMAB FROM 13/JUL/2021 TO 14/JUL2021, 12/AUG2021 TO 12/AUG2021, 09/S
     Route: 042
     Dates: start: 20210713
  2. BENDAMUSTINE HYDROCHLORIDE [Suspect]
     Active Substance: BENDAMUSTINE HYDROCHLORIDE
     Indication: Mantle cell lymphoma
     Dosage: SUBSEQUENT DOSE (134 MG) BENDAMUSTINE FROM 14/JUL/2021 TO 14/JUL/2021, 14/JUL/2021 TO 14/JUL/2021, 1
     Route: 042
     Dates: start: 20210714
  3. BENDAMUSTINE HYDROCHLORIDE [Suspect]
     Active Substance: BENDAMUSTINE HYDROCHLORIDE
     Dosage: SUBSEQUENT DOSE (104 MG) BENDAMUSTINE FROM 09/SEP/2021 TO 10/SEP/2021, 10/SEP/2021 TO 10/SEP/2021
     Route: 042
     Dates: start: 20210909
  4. ACALABRUTINIB [Suspect]
     Active Substance: ACALABRUTINIB
     Indication: Mantle cell lymphoma
     Dosage: SUBSEQUENT DOSE (100 MG) OF ACALABRUTINIB FROM 13/JUL/2021 TO 13/JUL/202, 14/SEP/2021 TO 14/SEP/2021
     Route: 048
     Dates: start: 20210713
  5. SULFAMETHOXAZOLE\TRIMETHOPRIM [Concomitant]
     Active Substance: SULFAMETHOXAZOLE\TRIMETHOPRIM
     Dosage: SUBSEQUENT DOSE ON 04/OCT/2021 TO 20/OCT2021, 04/NOV/2021 TO 28/DEC/2021 (8 MG), 29/DEC/2021 TO 13/J
     Route: 065
     Dates: start: 20211004
  6. ENTECAVIR [Concomitant]
     Active Substance: ENTECAVIR
     Indication: Prophylaxis
     Dosage: SUBSEQUENT DOSE ON 05/NOV/2021 TO 07/MAR/2022, 08/MAR/2022 TO 21/MAR/2022, 24/MAR2022
     Route: 048
     Dates: start: 20211105
  7. ASPIRIN [Concomitant]
     Active Substance: ASPIRIN
     Indication: Anticoagulant therapy
     Route: 048
     Dates: start: 20220318
  8. ATORVASTATIN CALCIUM [Concomitant]
     Active Substance: ATORVASTATIN CALCIUM
     Route: 048
     Dates: start: 20220318
  9. ACYCLOVIR [Concomitant]
     Active Substance: ACYCLOVIR
     Route: 048
     Dates: start: 20220518
  10. FUROSEMIDE [Concomitant]
     Active Substance: FUROSEMIDE
     Dosage: SUBSEQUENT DOSE ON 04/OCT/2021 TO 04/OCT/2021, 27/JAN/2022 TO 27/JAN/2022, 18/MAY2022 TO18/MAY2022
     Route: 042
     Dates: start: 20211004
  11. SOLU-MEDROL [Concomitant]
     Active Substance: METHYLPREDNISOLONE SODIUM SUCCINATE
     Route: 042
     Dates: start: 20220518
  12. PROMETHAZINE HYDROCHLORIDE [Concomitant]
     Active Substance: PROMETHAZINE HYDROCHLORIDE
     Dosage: SUBSEQUENT DOSE ON 13/JUL/2021 TO 13/JUL/2021, 09/SEP/2021 TO 09/SEP/2021(SUBCUTANEOUS), 27/JAN/2022
     Route: 030
     Dates: start: 20210713
  13. CEFTAZIDIME [Concomitant]
     Active Substance: CEFTAZIDIME
     Route: 042
     Dates: start: 20220531, end: 20220614
  14. METOPROLOL SUCCINATE [Concomitant]
     Active Substance: METOPROLOL SUCCINATE
     Indication: Atrial fibrillation
     Route: 048
     Dates: start: 20220531, end: 20220614

REACTIONS (3)
  - Pleural effusion [Not Recovered/Not Resolved]
  - Pulmonary embolism [Not Recovered/Not Resolved]
  - Cytomegalovirus infection [Recovered/Resolved]

NARRATIVE: CASE EVENT DATE: 20220530
